FAERS Safety Report 8103011-8 (Version None)
Quarter: 2012Q1

REPORT INFORMATION
  Report Type: 
  Country: None (occurrence: None)
  Receive Date: 20120201
  Receipt Date: 20120201
  Transmission Date: 20120608
  Serious: Yes (Other)
  Sender: FDA-Public Use
  Company Number: None

PATIENT
  Age: 63 Year
  Sex: Male
  Weight: 104.32 kg

DRUGS (1)
  1. LEVOFLOXACIN [Suspect]
     Indication: OROPHARYNGEAL PAIN
     Dosage: 750MG
     Dates: start: 20111103, end: 20111113

REACTIONS (2)
  - TENDON DISORDER [None]
  - MUSCULOSKELETAL DISORDER [None]
